FAERS Safety Report 19493895 (Version 3)
Quarter: 2021Q3

REPORT INFORMATION
  Report Type: Spontaneous
  Country: CL (occurrence: CL)
  Receive Date: 20210705
  Receipt Date: 20210910
  Transmission Date: 20211014
  Serious: Yes (Hospitalization, Other)
  Sender: FDA-Public Use
  Company Number: CL-GLAXOSMITHKLINE-CL2021AMR141797

PATIENT
  Age: 27 Year
  Sex: Male

DRUGS (2)
  1. OXYGEN THERAPY [Concomitant]
     Active Substance: OXYGEN
     Indication: BRONCHITIS
     Dosage: UNK
  2. NUCALA [Suspect]
     Active Substance: MEPOLIZUMAB
     Indication: ASTHMA
     Dosage: 10 MG Z (PER MONTH)
     Route: 058
     Dates: start: 20200101, end: 20210101

REACTIONS (9)
  - Pneumonia [Unknown]
  - Bronchitis [Recovered/Resolved]
  - Asthmatic crisis [Not Recovered/Not Resolved]
  - Product use in unapproved indication [Unknown]
  - Fatigue [Unknown]
  - Nasal polyps [Unknown]
  - Respiratory disorder [Unknown]
  - Dyspnoea [Unknown]
  - Cardiac murmur [Unknown]

NARRATIVE: CASE EVENT DATE: 202106
